FAERS Safety Report 20982917 (Version 4)
Quarter: 2022Q3

REPORT INFORMATION
  Report Type: Spontaneous
  Country: DE (occurrence: DE)
  Receive Date: 20220620
  Receipt Date: 20220927
  Transmission Date: 20221027
  Serious: Yes (Hospitalization, Other)
  Sender: FDA-Public Use
  Company Number: DE-NOVARTISPH-NVSC2022DE140105

PATIENT
  Age: 65 Year
  Sex: Female

DRUGS (14)
  1. CARBOPLATIN [Suspect]
     Active Substance: CARBOPLATIN
     Indication: Non-small cell lung cancer
     Dosage: 503 MG, EVERY 3 WEEKS
     Route: 042
     Dates: start: 20220329, end: 20220329
  2. CARBOPLATIN [Suspect]
     Active Substance: CARBOPLATIN
     Dosage: 380 MG, TIW
     Route: 042
     Dates: start: 20220328
  3. IPILIMUMAB [Suspect]
     Active Substance: IPILIMUMAB
     Indication: Non-small cell lung cancer
     Dosage: 59 MG (EVERY 6 WEEKS)
     Route: 042
     Dates: start: 20220329, end: 20220329
  4. NIVOLUMAB [Suspect]
     Active Substance: NIVOLUMAB
     Indication: Non-small cell lung cancer
     Dosage: 360 MG, EVERY 3 WEEKS
     Route: 042
     Dates: start: 20220329
  5. YERVOY [Suspect]
     Active Substance: IPILIMUMAB
     Indication: Non-small cell lung cancer
     Dosage: 59 MG, EVERY 6 WEEKS
     Route: 042
     Dates: start: 20220329, end: 20220329
  6. YERVOY [Suspect]
     Active Substance: IPILIMUMAB
     Indication: Non-small cell lung cancer
     Dosage: UNK
     Route: 065
     Dates: start: 202204
  7. OPDIVO [Suspect]
     Active Substance: NIVOLUMAB
     Indication: Non-small cell lung cancer
     Dosage: 360 MG, TIW, EVERY 3 WEEKS
     Route: 042
     Dates: start: 20220329, end: 20220421
  8. OPDIVO [Suspect]
     Active Substance: NIVOLUMAB
     Dosage: UNK, (FREQ: ONE CYCLE)
     Route: 065
     Dates: start: 202204
  9. OPDIVO [Suspect]
     Active Substance: NIVOLUMAB
     Dosage: UNK, (FREQ: UNAVAILABLE)
     Route: 065
  10. TAVOR [Concomitant]
     Indication: Product used for unknown indication
     Dosage: UNK
     Route: 065
     Dates: start: 20190101
  11. DEXAMETHASONE [Concomitant]
     Active Substance: DEXAMETHASONE
     Indication: Product used for unknown indication
     Dosage: UNK
     Route: 065
     Dates: start: 20220207
  12. LEVETIRACETAM [Concomitant]
     Active Substance: LEVETIRACETAM
     Indication: Product used for unknown indication
     Dosage: UNK
     Route: 065
     Dates: start: 20220221
  13. FOLIC ACID [Concomitant]
     Active Substance: FOLIC ACID
     Indication: Product used for unknown indication
     Dosage: UNK
     Route: 065
     Dates: start: 20220309, end: 20220329
  14. PREDNISOLONE [Concomitant]
     Active Substance: PREDNISOLONE
     Indication: Product used for unknown indication
     Dosage: 20 MG, QD
     Route: 065
     Dates: start: 20220510

REACTIONS (7)
  - Colitis [Recovering/Resolving]
  - Thrombocytopenia [Recovering/Resolving]
  - Anaemia [Not Recovered/Not Resolved]
  - Anaemia [Not Recovered/Not Resolved]
  - Diarrhoea [Unknown]
  - Thrombocytosis [Recovering/Resolving]
  - Anaemia of chronic disease [Recovering/Resolving]

NARRATIVE: CASE EVENT DATE: 20220101
